FAERS Safety Report 12532115 (Version 1)
Quarter: 2016Q3

REPORT INFORMATION
  Report Type: Spontaneous
  Country: IT (occurrence: IT)
  Receive Date: 20160706
  Receipt Date: 20160706
  Transmission Date: 20161109
  Serious: Yes (Other)
  Sender: FDA-Public Use
  Company Number: IT-WATSON-2016-14071

PATIENT
  Age: 77 Year
  Sex: Male

DRUGS (1)
  1. BACLOFEN (UNKNOWN) [Suspect]
     Active Substance: BACLOFEN
     Indication: HEMIPARESIS
     Dosage: 5 MG, TID
     Route: 065

REACTIONS (1)
  - Pleurothotonus [Recovered/Resolved]
